FAERS Safety Report 7326346-5 (Version None)
Quarter: 2011Q1

REPORT INFORMATION
  Report Type: 
  Country: None (occurrence: None)
  Receive Date: 20110302
  Receipt Date: 20110223
  Transmission Date: 20110831
  Serious: Yes (Hospitalization)
  Sender: FDA-Public Use
  Company Number: B0703090A

PATIENT

DRUGS (1)
  1. IMIJECT [Suspect]
     Indication: PRODUCT USED FOR UNKNOWN INDICATION
     Route: 042

REACTIONS (3)
  - DRUG INEFFECTIVE [None]
  - DEVICE FAILURE [None]
  - CLUSTER HEADACHE [None]
